FAERS Safety Report 11279084 (Version 1)
Quarter: 2015Q3

REPORT INFORMATION
  Report Type: Spontaneous
  Country: ES (occurrence: ES)
  Receive Date: 20150717
  Receipt Date: 20150717
  Transmission Date: 20151125
  Serious: Yes (Other)
  Sender: FDA-Public Use
  Company Number: ES-ELI_LILLY_AND_COMPANY-ES201507003867

PATIENT
  Age: 66 Year
  Sex: Male

DRUGS (4)
  1. GEMCITABINE HYDROCHLORIDE. [Suspect]
     Active Substance: GEMCITABINE HYDROCHLORIDE
     Indication: ADENOCARCINOMA PANCREAS
     Dosage: 1000 MG/M2, CYCLICAL
     Route: 065
  2. PACLITAXEL. [Concomitant]
     Active Substance: PACLITAXEL
     Indication: ADENOCARCINOMA PANCREAS
     Dosage: 125 MG/M2, CYCLICAL
     Route: 065
  3. GEMCITABINE HYDROCHLORIDE. [Suspect]
     Active Substance: GEMCITABINE HYDROCHLORIDE
     Dosage: 150 MG/M2, CYCLICAL
     Route: 065
  4. PACLITAXEL. [Concomitant]
     Active Substance: PACLITAXEL
     Dosage: 18.75 MG/M2, CYCLICAL
     Route: 065

REACTIONS (9)
  - Neuropathy peripheral [Unknown]
  - Leukopenia [Unknown]
  - Abdominal discomfort [Unknown]
  - Pain [Unknown]
  - Haematemesis [Recovered/Resolved]
  - Fluid retention [Unknown]
  - Asthenia [Unknown]
  - Gastrointestinal oedema [Unknown]
  - Anaemia [Unknown]
